FAERS Safety Report 9041997 (Version 1)
Quarter: 2013Q1

REPORT INFORMATION
  Report Type: Report from Study
  Country: US (occurrence: US)
  Receive Date: 20130129
  Receipt Date: 20130129
  Transmission Date: 20140127
  Serious: No
  Sender: FDA-Public Use
  Company Number: US-ABBOTT-12P-163-0905378-00

PATIENT
  Age: 52 Year
  Sex: Male
  Weight: 84.9 kg

DRUGS (5)
  1. HUMIRA 40 MG/0.8 ML PEN [Suspect]
     Indication: PSORIATIC ARTHROPATHY
     Dates: start: 201104
  2. METFORMIN [Concomitant]
     Indication: DIABETES MELLITUS
  3. CRESTOR [Concomitant]
     Indication: BLOOD CHOLESTEROL
  4. LOVAZA [Concomitant]
     Indication: BLOOD CHOLESTEROL
  5. NORCO [Concomitant]
     Indication: PAIN

REACTIONS (1)
  - Dysphonia [Not Recovered/Not Resolved]
